FAERS Safety Report 7627423 (Version 2)
Quarter: 2016Q1

REPORT INFORMATION
  Report Type: Spontaneous
  Country: US (occurrence: US)
  Receive Date: 20101013
  Receipt Date: 20160208
  Transmission Date: 20160526
  Serious: No
  Sender: FDA-Public Use
  Company Number: US-ASTRAZENECA-2009SE10573

PATIENT
  Age: 779 Month
  Sex: Male
  Weight: 85.3 kg

DRUGS (5)
  1. SYMBICORT [Suspect]
     Active Substance: BUDESONIDE\FORMOTEROL FUMARATE DIHYDRATE
     Indication: SARCOIDOSIS
     Route: 055
     Dates: start: 200908
  2. EXFORGE [Concomitant]
     Active Substance: AMLODIPINE BESYLATE\VALSARTAN
  3. SPIRIVA [Concomitant]
     Active Substance: TIOTROPIUM BROMIDE MONOHYDRATE
  4. PREDNISONE. [Concomitant]
     Active Substance: PREDNISONE
  5. TUDORZA PRESSAIR [Suspect]
     Active Substance: ACLIDINIUM BROMIDE
     Route: 055

REACTIONS (6)
  - Circumstance or information capable of leading to medication error [Unknown]
  - Sleep disorder [Unknown]
  - Pharyngitis [Unknown]
  - Pain in extremity [Unknown]
  - Extra dose administered [Unknown]
  - Product quality issue [Unknown]

NARRATIVE: CASE EVENT DATE: 200908
